FAERS Safety Report 5664964-0 (Version None)
Quarter: 2008Q1

REPORT INFORMATION
  Report Type: 
  Country: None (occurrence: None)
  Receive Date: 20080314
  Receipt Date: 20080307
  Transmission Date: 20080703
  Serious: Yes (Hospitalization, Other)
  Sender: FDA-Public Use
  Company Number: US-ABBOTT-08P-163-0441499-00

PATIENT
  Sex: Female
  Weight: 52.664 kg

DRUGS (3)
  1. HUMIRA [Suspect]
     Indication: RHEUMATOID ARTHRITIS
     Route: 058
     Dates: start: 20050101
  2. HUMIRA [Suspect]
     Route: 058
  3. HUMIRA [Suspect]
     Route: 058

REACTIONS (11)
  - ARTHRALGIA [None]
  - CATARACT [None]
  - CHILLS [None]
  - FALL [None]
  - GRAND MAL CONVULSION [None]
  - HAEMATEMESIS [None]
  - INSOMNIA [None]
  - KNEE ARTHROPLASTY [None]
  - LOWER LIMB FRACTURE [None]
  - PYREXIA [None]
  - VISUAL DISTURBANCE [None]
